FAERS Safety Report 7299353-9 (Version None)
Quarter: 2011Q1

REPORT INFORMATION
  Report Type: 
  Country: None (occurrence: None)
  Receive Date: 20110217
  Receipt Date: 20110207
  Transmission Date: 20110831
  Serious: Yes (Other)
  Sender: FDA-Public Use
  Company Number: A0912288A

PATIENT
  Age: 24 Year
  Sex: Male

DRUGS (1)
  1. ADVAIR [Suspect]
     Indication: ASTHMA
     Dosage: 1PUFF TWICE PER DAY
     Route: 055
     Dates: start: 20101001

REACTIONS (2)
  - PRODUCT QUALITY ISSUE [None]
  - ASTHMA [None]
